FAERS Safety Report 8246254-5 (Version None)
Quarter: 2012Q1

REPORT INFORMATION
  Report Type: 
  Country: None (occurrence: None)
  Receive Date: 20120330
  Receipt Date: 20120321
  Transmission Date: 20120608
  Serious: Yes (Hospitalization)
  Sender: FDA-Public Use
  Company Number: US-BAYER-2012-028762

PATIENT
  Age: 33 Year
  Sex: Female
  Weight: 65.8 kg

DRUGS (16)
  1. VICOPROFEN [Concomitant]
     Dosage: 7.5/20MG
     Route: 048
     Dates: start: 20061016
  2. SKELAXIN [Concomitant]
     Dosage: 800 MG, UNK
     Route: 048
     Dates: start: 20061016
  3. FLAGYL [Concomitant]
     Dosage: UNK
     Dates: start: 20061101
  4. ANAESTHETICS [Concomitant]
     Dosage: UNK
     Route: 008
     Dates: start: 20060923
  5. INDOMETHACIN [Concomitant]
     Indication: SACROILIITIS
     Dosage: 25 MG, UNK
     Route: 048
     Dates: start: 20061006
  6. NAPROXEN (ALEVE) [Concomitant]
     Dosage: UNK
     Route: 048
     Dates: start: 20061014
  7. PERCOCET [Concomitant]
     Dosage: 5/325MG
     Route: 048
     Dates: start: 20061108
  8. NAPROXEN [Concomitant]
     Dosage: 550 MG, UNK
     Route: 048
     Dates: start: 20061102, end: 20061108
  9. CIPROFLOXACIN [Concomitant]
     Dosage: 250 MG, UNK
     Route: 048
     Dates: start: 20061016
  10. PREDNISONE TAB [Concomitant]
     Dosage: 10 MG, UNK
     Route: 048
     Dates: start: 20061108
  11. VANCOMYCIN [Concomitant]
     Dosage: UNK
     Dates: start: 20061101
  12. CEFEPIME [Concomitant]
     Dosage: UNK
     Dates: start: 20061101
  13. YAZ [Suspect]
     Dosage: UNK
     Dates: start: 20060101
  14. MAXIPIME [Concomitant]
     Dosage: UNK
     Dates: start: 20061101
  15. PRENATAL [VIT C,B5,B12,D2,B3,B6,RETINOL PALMIT,B2,B1 MONONITR] [Concomitant]
     Dosage: UNK
     Dates: start: 20060815
  16. ANAPROX DS [Concomitant]
     Dosage: UNK
     Dates: start: 20061102

REACTIONS (2)
  - PULMONARY EMBOLISM [None]
  - DEEP VEIN THROMBOSIS [None]
